FAERS Safety Report 16961426 (Version 1)
Quarter: 2019Q4

REPORT INFORMATION
  Report Type: Spontaneous
  Country: GB (occurrence: GB)
  Receive Date: 20191025
  Receipt Date: 20191025
  Transmission Date: 20200122
  Serious: Yes (Other)
  Sender: FDA-Public Use
  Company Number: GB-PFIZER INC-2019459843

PATIENT
  Age: 46 Year
  Sex: Female
  Weight: 72 kg

DRUGS (5)
  1. MICONAZOLE. [Concomitant]
     Active Substance: MICONAZOLE
     Dosage: 5 G, 1X/DAY (FOR 10-14DAYS)
     Dates: start: 20191001
  2. FLUCONAZOLE. [Suspect]
     Active Substance: FLUCONAZOLE
     Dosage: 50 MG, 1X/DAY
     Dates: start: 20190930
  3. TOPIRAMATE. [Concomitant]
     Active Substance: TOPIRAMATE
     Dosage: 2 DF, UNK ( NIGHT)
     Dates: start: 20190326
  4. MIRENA [Concomitant]
     Active Substance: LEVONORGESTREL
     Dosage: UNK (USE AS DIRECTED)
     Dates: start: 20190710
  5. SUMATRIPTAN. [Concomitant]
     Active Substance: SUMATRIPTAN
     Indication: MIGRAINE
     Dosage: 1 DF, UNK (AT ONSET OF MIGRAINE, DOSE MAY BE REPEATED)
     Dates: start: 20190114

REACTIONS (1)
  - Urticaria [Recovered/Resolved]

NARRATIVE: CASE EVENT DATE: 20191001
